FAERS Safety Report 23329466 (Version 1)
Quarter: 2023Q4

REPORT INFORMATION
  Report Type: Spontaneous
  Country: GB (occurrence: US)
  Receive Date: 20231222
  Receipt Date: 20231222
  Transmission Date: 20240109
  Serious: No
  Sender: FDA-Public Use
  Company Number: GB-OPELLA-2023OHG019347

PATIENT
  Sex: Female

DRUGS (1)
  1. DULCOLAX (BISACODYL) [Suspect]
     Active Substance: BISACODYL

REACTIONS (6)
  - Muscle spasms [Unknown]
  - Presyncope [Unknown]
  - Feeling of body temperature change [Unknown]
  - Insomnia [Unknown]
  - Pain [Unknown]
  - Crying [Unknown]
